FAERS Safety Report 24433789 (Version 1)
Quarter: 2024Q4

REPORT INFORMATION
  Report Type: Spontaneous
  Country: US (occurrence: US)
  Receive Date: 20241014
  Receipt Date: 20241014
  Transmission Date: 20250115
  Serious: No
  Sender: SPROUT PHARMACEUTICALS, INC.
  Company Number: US-Sprout Pharmaceuticals, Inc.-2023SP000364

PATIENT
  Age: 24 Year
  Sex: Female

DRUGS (1)
  1. ADDYI [Suspect]
     Active Substance: FLIBANSERIN
     Indication: Product used for unknown indication
     Dosage: RX # 8646182
     Route: 048
     Dates: start: 202310

REACTIONS (2)
  - Malaise [Not Recovered/Not Resolved]
  - Nausea [Not Recovered/Not Resolved]

NARRATIVE: CASE EVENT DATE: 20231101
